FAERS Safety Report 6529136-6 (Version None)
Quarter: 2010Q1

REPORT INFORMATION
  Report Type: 
  Country: None (occurrence: None)
  Receive Date: 20100107
  Receipt Date: 20091230
  Transmission Date: 20100710
  Serious: Yes (Death)
  Sender: FDA-Public Use
  Company Number: GB-TEVA-219470ISR

PATIENT
  Age: 65 Year
  Sex: Male

DRUGS (2)
  1. AMIODARONE HCL [Suspect]
     Indication: ELECTROCARDIOGRAM QT PROLONGED
     Route: 042
  2. AMIODARONE HCL [Suspect]
     Indication: PROPHYLAXIS

REACTIONS (3)
  - CARDIOGENIC SHOCK [None]
  - ELECTROCARDIOGRAM QT PROLONGED [None]
  - VENTRICULAR DYSFUNCTION [None]
